FAERS Safety Report 9401389 (Version 1)
Quarter: 2013Q3

REPORT INFORMATION
  Report Type: Spontaneous
  Country: CN (occurrence: CN)
  Receive Date: 20130715
  Receipt Date: 20130715
  Transmission Date: 20140515
  Serious: Yes (Other)
  Sender: FDA-Public Use
  Company Number: CN-BAXTER-2013BAX026702

PATIENT
  Sex: Female
  Weight: 50 kg

DRUGS (1)
  1. 20% MANNITOL INJECTION [Suspect]
     Indication: BRAIN OEDEMA
     Route: 041
     Dates: start: 20120309, end: 20120310

REACTIONS (2)
  - Renal impairment [Recovering/Resolving]
  - Oliguria [Unknown]
